FAERS Safety Report 11735007 (Version 2)
Quarter: 2016Q1

REPORT INFORMATION
  Report Type: Spontaneous
  Country: FR (occurrence: FR)
  Receive Date: 20151113
  Receipt Date: 20160112
  Transmission Date: 20160525
  Serious: Yes (Other)
  Sender: FDA-Public Use
  Company Number: FR-PFIZER INC-2015370977

PATIENT
  Age: 59 Year
  Sex: Male

DRUGS (2)
  1. XALKORI [Suspect]
     Active Substance: CRIZOTINIB
     Indication: LUNG NEOPLASM MALIGNANT
     Dosage: UNK
     Route: 048
     Dates: start: 20141001
  2. ISOPTINE [Concomitant]
     Active Substance: VERAPAMIL HYDROCHLORIDE
     Dosage: UNK

REACTIONS (2)
  - Rash erythematous [Not Recovered/Not Resolved]
  - Exfoliative rash [Not Recovered/Not Resolved]

NARRATIVE: CASE EVENT DATE: 20150601
